FAERS Safety Report 11735566 (Version 1)
Quarter: 2015Q4

REPORT INFORMATION
  Report Type: Report from Study
  Country: PL (occurrence: PL)
  Receive Date: 20151113
  Receipt Date: 20151113
  Transmission Date: 20160304
  Serious: Yes (Hospitalization)
  Sender: FDA-Public Use
  Company Number: PL-TEVA-606416ISR

PATIENT
  Age: 72 Year
  Sex: Male

DRUGS (4)
  1. DOCETAXEL. [Suspect]
     Active Substance: DOCETAXEL
     Indication: NON-SMALL CELL LUNG CANCER
     Dosage: DAY 1 OF A 21 DAY CYCLE
     Route: 042
     Dates: start: 20150528, end: 20150925
  2. CLEXANE [Concomitant]
     Active Substance: ENOXAPARIN SODIUM
     Indication: PULMONARY EMBOLISM
     Dosage: 1.6 MILLIGRAM DAILY;
     Route: 058
     Dates: start: 20151015
  3. CUSTIRSEN [Suspect]
     Active Substance: CUSTIRSEN
     Indication: NON-SMALL CELL LUNG CANCER
     Dosage: 640 MG DAY 1,8,15 OF 21 DAY CYCLE
     Route: 042
     Dates: start: 20150520, end: 20151002
  4. AUGMENTIN [Concomitant]
     Active Substance: AMOXICILLIN\CLAVULANATE POTASSIUM
     Indication: CHRONIC OBSTRUCTIVE PULMONARY DISEASE
     Dosage: 2 GRAM DAILY;
     Route: 048
     Dates: start: 20151015

REACTIONS (1)
  - Embolic pneumonia [Recovering/Resolving]

NARRATIVE: CASE EVENT DATE: 20151015
